FAERS Safety Report 7765272-4 (Version None)
Quarter: 2011Q3

REPORT INFORMATION
  Report Type: 
  Country: None (occurrence: None)
  Receive Date: 20110921
  Receipt Date: 20110916
  Transmission Date: 20111222
  Serious: Yes (Hospitalization)
  Sender: FDA-Public Use
  Company Number: IT-GLAXOSMITHKLINE-B0749303A

PATIENT
  Sex: Male

DRUGS (5)
  1. LORAZEPAM [Concomitant]
  2. QUINAZIDE [Concomitant]
     Dosage: 20MG PER DAY
  3. PAROXETINE HYDROCHLORIDE [Suspect]
     Indication: DEPRESSION
     Dosage: 20MG PER DAY
     Route: 048
     Dates: start: 20110829, end: 20110901
  4. SILODOSIN [Concomitant]
     Dosage: 8MG PER DAY
  5. OMEPRAZOLE [Concomitant]

REACTIONS (4)
  - EYE PAIN [None]
  - PUPILS UNEQUAL [None]
  - VISUAL IMPAIRMENT [None]
  - HEADACHE [None]
